FAERS Safety Report 8911793 (Version 4)
Quarter: 2013Q1

REPORT INFORMATION
  Report Type: Spontaneous
  Country: US (occurrence: US)
  Receive Date: 20121115
  Receipt Date: 20130128
  Transmission Date: 20140127
  Serious: Yes (Other)
  Sender: FDA-Public Use
  Company Number: US-GLAXOSMITHKLINE-A0981304A

PATIENT
  Age: 66 Year
  Sex: Female
  Weight: 55 kg

DRUGS (4)
  1. TYKERB [Suspect]
     Indication: BREAST CANCER
     Dosage: 1000MG PER DAY
     Route: 048
     Dates: start: 20120515
  2. HERCEPTIN [Concomitant]
     Indication: BREAST CANCER
     Dosage: 338MG EVERY 3 WEEKS
     Route: 042
     Dates: start: 20120425
  3. INFERTILITY THERAPY UNSPECIFIED [Concomitant]
  4. HORMONE REPLACEMENT THERAPY [Concomitant]

REACTIONS (21)
  - Mitral valve incompetence [Not Recovered/Not Resolved]
  - Dry mouth [Recovered/Resolved]
  - Stomatitis [Recovered/Resolved]
  - Nasal congestion [Recovered/Resolved]
  - Ear discomfort [Recovered/Resolved]
  - Skin disorder [Recovered/Resolved]
  - Hot flush [Recovered/Resolved]
  - Muscle spasms [Recovered/Resolved]
  - Pruritus [Unknown]
  - Dry skin [Unknown]
  - Alopecia [Unknown]
  - Trichorrhexis [Unknown]
  - Mitral valve disease [Not Recovered/Not Resolved]
  - Cardiac disorder [Not Recovered/Not Resolved]
  - Onychoclasis [Not Recovered/Not Resolved]
  - Pain in extremity [Not Recovered/Not Resolved]
  - Onychalgia [Not Recovered/Not Resolved]
  - Impaired healing [Not Recovered/Not Resolved]
  - Nail discolouration [Not Recovered/Not Resolved]
  - Nail disorder [Not Recovered/Not Resolved]
  - Nail bed disorder [Not Recovered/Not Resolved]
